FAERS Safety Report 6910655-5 (Version None)
Quarter: 2010Q3

REPORT INFORMATION
  Report Type: 
  Country: None (occurrence: None)
  Receive Date: 20100806
  Receipt Date: 20100729
  Transmission Date: 20110219
  Serious: Yes (Disabling, Other)
  Sender: FDA-Public Use
  Company Number: CH-ROCHE-718147

PATIENT
  Sex: Female

DRUGS (3)
  1. BONIVA [Suspect]
     Indication: OSTEOPOROSIS
     Route: 048
     Dates: start: 20100601, end: 20100701
  2. ARIMIDEX [Concomitant]
     Indication: BREAST CANCER
  3. L-DOPA [Concomitant]
     Indication: PROGRESSIVE SUPRANUCLEAR PALSY

REACTIONS (3)
  - CONVULSION [None]
  - FALL [None]
  - RIB FRACTURE [None]
